FAERS Safety Report 20408999 (Version 1)
Quarter: 2022Q1

REPORT INFORMATION
  Report Type: Spontaneous
  Country: JP (occurrence: JP)
  Receive Date: 20220201
  Receipt Date: 20220201
  Transmission Date: 20220423
  Serious: Yes (Hospitalization)
  Sender: FDA-Public Use
  Company Number: JP-LUPIN PHARMACEUTICALS INC.-2022-01148

PATIENT
  Age: 53 Year
  Sex: Male

DRUGS (15)
  1. VORICONAZOLE [Suspect]
     Active Substance: VORICONAZOLE
     Indication: Aspergillus infection
     Dosage: UNK
     Route: 042
  2. AMPHOTERICIN B [Suspect]
     Active Substance: AMPHOTERICIN B
     Indication: Aspergillus infection
     Dosage: 3 MILLIGRAM, QD
     Route: 065
  3. INOTUZUMAB OZOGAMICIN [Suspect]
     Active Substance: INOTUZUMAB OZOGAMICIN
     Indication: Aspergillus infection
     Dosage: UNK
     Route: 065
     Dates: start: 202111
  4. MICAFUNGIN [Suspect]
     Active Substance: MICAFUNGIN
     Indication: Aspergillus infection
     Dosage: UNK
     Route: 065
     Dates: start: 202111
  5. MITOXANTRONE [Concomitant]
     Active Substance: MITOXANTRONE HYDROCHLORIDE
     Indication: Bone marrow necrosis
     Dosage: UNK
     Route: 065
  6. MITOXANTRONE [Concomitant]
     Active Substance: MITOXANTRONE HYDROCHLORIDE
     Indication: Acute lymphocytic leukaemia recurrent
  7. ETOPOSIDE [Concomitant]
     Active Substance: ETOPOSIDE
     Indication: Bone marrow necrosis
     Dosage: UNK
     Route: 065
  8. ETOPOSIDE [Concomitant]
     Active Substance: ETOPOSIDE
     Indication: Acute lymphocytic leukaemia recurrent
  9. CYTARABINE [Concomitant]
     Active Substance: CYTARABINE
     Indication: Bone marrow necrosis
     Dosage: UNK
     Route: 065
  10. CYTARABINE [Concomitant]
     Active Substance: CYTARABINE
     Indication: Acute lymphocytic leukaemia recurrent
  11. PERAMIVIR [Concomitant]
     Active Substance: PERAMIVIR
     Indication: Influenza
     Dosage: 300 MG, QD
     Route: 042
  12. MEROPENEM [Concomitant]
     Active Substance: MEROPENEM
     Indication: Influenza
     Dosage: UNK
     Route: 065
     Dates: start: 202111
  13. TEICOPLANIN [Concomitant]
     Active Substance: TEICOPLANIN
     Indication: Influenza
     Dosage: UNK
     Route: 065
  14. CASPOFUNGIN [Concomitant]
     Active Substance: CASPOFUNGIN
     Indication: Aspergillus infection
     Dosage: UNK
     Route: 065
  15. PIPERACILLIN AND TAZOBACTAM [Concomitant]
     Active Substance: PIPERACILLIN SODIUM\TAZOBACTAM SODIUM
     Indication: Influenza
     Dosage: UNK
     Route: 065

REACTIONS (1)
  - Drug ineffective [Unknown]
